FAERS Safety Report 7230824-7 (Version None)
Quarter: 2011Q1

REPORT INFORMATION
  Report Type: 
  Country: None (occurrence: None)
  Receive Date: 20110118
  Receipt Date: 20110105
  Transmission Date: 20110831
  Serious: Yes (Hospitalization)
  Sender: FDA-Public Use
  Company Number: CA-ELI_LILLY_AND_COMPANY-CA201101001477

PATIENT
  Age: 60 Year
  Sex: Male
  Weight: 95 kg

DRUGS (10)
  1. SYNTHROID [Concomitant]
     Indication: THYROID THERAPY
     Dosage: 112 UG, DAILY (1/D)
     Dates: start: 20101219
  2. PLAVIX [Concomitant]
     Dosage: 75 MG, UNK
     Dates: start: 20101219, end: 20101220
  3. PRASUGREL HYDROCHLORIDE [Suspect]
     Indication: ACUTE MYOCARDIAL INFARCTION
     Dosage: 10 MG, DAILY (1/D)
     Route: 048
     Dates: start: 20101221
  4. ACETAMINOPHEN W/ CODEINE [Concomitant]
     Indication: PAIN
     Dates: start: 20101220, end: 20101220
  5. POTASSIUM CHLORIDE [Concomitant]
     Dates: start: 20101219, end: 20101219
  6. RAMIPRIL [Concomitant]
     Dosage: 5 MG, 2/D
     Dates: start: 20101219
  7. SIMVASTATIN [Concomitant]
     Indication: BLOOD CHOLESTEROL
     Dosage: 40 MG, DAILY (1/D)
     Dates: start: 20101220
  8. H7T-BLINDED THERAPY [Suspect]
     Indication: ACUTE MYOCARDIAL INFARCTION
     Route: 048
     Dates: start: 20101220, end: 20101220
  9. ASPIRIN [Concomitant]
     Indication: PROPHYLAXIS
     Dosage: 325 MG, DAILY (1/D)
     Dates: start: 20101219
  10. METOPROLOL [Concomitant]
     Dosage: 25 MG, 2/D
     Dates: start: 20101220

REACTIONS (1)
  - INTRACARDIAC THROMBUS [None]
